FAERS Safety Report 10793242 (Version 1)
Quarter: 2015Q1

REPORT INFORMATION
  Report Type: Spontaneous
  Country: US (occurrence: None)
  Receive Date: 20150212
  Receipt Date: 20150212
  Transmission Date: 20150721
  Serious: Yes (Life-Threatening, Hospitalization)
  Sender: FDA-Public Use
  Company Number: None

PATIENT
  Age: 79 Year
  Sex: Female
  Weight: 60 kg

DRUGS (16)
  1. AZITHROMYCIN [Suspect]
     Active Substance: AZITHROMYCIN ANHYDROUS
     Indication: PNEUMONIA
     Route: 042
     Dates: start: 20141206, end: 20141207
  2. FAMOTIDINE. [Concomitant]
     Active Substance: FAMOTIDINE
  3. NIFEDIPINE ER [Concomitant]
     Active Substance: NIFEDIPINE
  4. HYDROCODONE/APAP [Concomitant]
     Active Substance: ACETAMINOPHEN\HYDROCODONE
  5. CEFTRIAXONE. [Concomitant]
     Active Substance: CEFTRIAXONE
  6. LEVOTHYROXINE [Concomitant]
     Active Substance: LEVOTHYROXINE
  7. LISINOPRIL. [Concomitant]
     Active Substance: LISINOPRIL
  8. ATORVASTATIN [Concomitant]
     Active Substance: ATORVASTATIN
  9. ASA [Concomitant]
     Active Substance: ASPIRIN
  10. INSULIN LISPRO [Concomitant]
     Active Substance: INSULIN LISPRO
  11. APAP [Concomitant]
     Active Substance: ACETAMINOPHEN
  12. BUSPIRONE [Concomitant]
     Active Substance: BUSPIRONE HYDROCHLORIDE
  13. ALBUTEROL SULFATE. [Concomitant]
     Active Substance: ALBUTEROL SULFATE
  14. BUDESONIDE/FORMOTEROL [Concomitant]
     Active Substance: BUDESONIDE\FORMOTEROL
  15. INSULIN GLARGINE [Concomitant]
     Active Substance: INSULIN GLARGINE
  16. METOPROLOL TARTRATE. [Concomitant]
     Active Substance: METOPROLOL TARTRATE

REACTIONS (2)
  - Ventricular tachycardia [None]
  - Ventricular fibrillation [None]

NARRATIVE: CASE EVENT DATE: 20141206
